FAERS Safety Report 20770832 (Version 3)
Quarter: 2022Q2

REPORT INFORMATION
  Report Type: Spontaneous
  Country: JP (occurrence: JP)
  Receive Date: 20220429
  Receipt Date: 20220607
  Transmission Date: 20220721
  Serious: Yes (Hospitalization)
  Sender: FDA-Public Use
  Company Number: JP-UROVANT SCIENCES GMBH-202204-URV-000478

PATIENT
  Age: 78 Year
  Sex: Male

DRUGS (2)
  1. VIBEGRON [Suspect]
     Active Substance: VIBEGRON
     Indication: Hypertonic bladder
     Dosage: 50 MG, QD
     Route: 048
     Dates: start: 20200331, end: 20210216
  2. SILODOSIN [Concomitant]
     Active Substance: SILODOSIN
     Indication: Product used for unknown indication
     Dosage: 4 MG, QD
     Dates: start: 20190110

REACTIONS (1)
  - Bile duct cancer [Unknown]

NARRATIVE: CASE EVENT DATE: 20200603
